FAERS Safety Report 4457324-1 (Version None)
Quarter: 2004Q3

REPORT INFORMATION
  Report Type: 
  Country: None (occurrence: None)
  Receive Date: 20040922
  Receipt Date: 20040907
  Transmission Date: 20050211
  Serious: Yes (Other)
  Sender: FDA-Public Use
  Company Number: USA040977620

PATIENT
  Age: 79 Year
  Sex: Female

DRUGS (2)
  1. FORTEO [Suspect]
     Indication: OSTEOPOROSIS
     Dates: start: 20030101
  2. ROCALTROL [Concomitant]

REACTIONS (3)
  - DEMENTIA [None]
  - PHARMACEUTICAL PRODUCT COMPLAINT [None]
  - PSEUDOHYPOPARATHYROIDISM [None]
